FAERS Safety Report 21935578 (Version 1)
Quarter: 2023Q1

REPORT INFORMATION
  Report Type: Spontaneous
  Country: FR (occurrence: FR)
  Receive Date: 20230201
  Receipt Date: 20230201
  Transmission Date: 20230417
  Serious: Yes (Hospitalization)
  Sender: FDA-Public Use
  Company Number: FR-MYLANLABS-2023M1010968

PATIENT
  Age: 28 Year
  Sex: Male

DRUGS (10)
  1. ECONAZOLE [Suspect]
     Active Substance: ECONAZOLE
     Indication: Dermatophytosis
     Dosage: UNK
     Route: 061
  2. ECONAZOLE [Suspect]
     Active Substance: ECONAZOLE
     Indication: Trichophytosis
  3. GRISEOFULVIN [Suspect]
     Active Substance: GRISEOFULVIN
     Indication: Dermatophytosis
     Dosage: 500 MILLIGRAM, BID (SYSTEMIC)
     Route: 065
  4. GRISEOFULVIN [Suspect]
     Active Substance: GRISEOFULVIN
     Indication: Trichophytosis
  5. BIFONAZOLE [Suspect]
     Active Substance: BIFONAZOLE
     Indication: Dermatophytosis
     Dosage: UNK
     Route: 061
  6. BIFONAZOLE [Suspect]
     Active Substance: BIFONAZOLE
     Indication: Trichophytosis
  7. TERBINAFINE [Concomitant]
     Active Substance: TERBINAFINE
     Indication: Dermatophytosis
     Dosage: 250 MILLIGRAM, QD (SYSTEMIC)
     Route: 065
  8. TERBINAFINE [Concomitant]
     Active Substance: TERBINAFINE
     Indication: Trichophytosis
  9. TERBINAFINE [Concomitant]
     Active Substance: TERBINAFINE
     Indication: Dermatophytosis
     Dosage: UNK
     Route: 061
  10. TERBINAFINE [Concomitant]
     Active Substance: TERBINAFINE
     Indication: Trichophytosis

REACTIONS (1)
  - Treatment failure [Unknown]
